FAERS Safety Report 7130369-9 (Version None)
Quarter: 2010Q4

REPORT INFORMATION
  Report Type: 
  Country: None (occurrence: None)
  Receive Date: 20101101
  Receipt Date: 20100920
  Transmission Date: 20110411
  Serious: Yes (Hospitalization)
  Sender: FDA-Public Use
  Company Number: AMAG201000361

PATIENT
  Age: 58 Year
  Sex: Male
  Weight: 95.7 kg

DRUGS (10)
  1. FERAHEME [Suspect]
     Indication: IRON DEFICIENCY ANAEMIA
     Dosage: 510 MG, SINGLE, INTRAVENOUS
     Route: 042
     Dates: start: 20100920, end: 20100920
  2. MULTIVITAMINS, OTHER COMBINATIONS [Concomitant]
  3. ALLOPURINOL [Concomitant]
  4. NIFEDIPINE [Concomitant]
  5. PERCOCET [Concomitant]
  6. CALCIUM (CALCIUM GLUBIONATE) TABLET [Concomitant]
  7. ZOCOR [Concomitant]
  8. ASPIRIN [Concomitant]
  9. LISINOPRIL-HYDROCHLOROTHIAZIDE (LISINOPRIL DIHYDRATE) [Concomitant]
  10. LASIX (FUROSEMIDE SODIUM) TABLET [Concomitant]

REACTIONS (1)
  - ANAPHYLACTIC REACTION [None]
